FAERS Safety Report 9171913 (Version 2)
Quarter: 2013Q1

REPORT INFORMATION
  Report Type: Report from Study
  Country: SE (occurrence: SE)
  Receive Date: 20130319
  Receipt Date: 20130321
  Transmission Date: 20140127
  Serious: Yes (Hospitalization)
  Sender: FDA-Public Use
  Company Number: PHHO2013SE003791

PATIENT
  Sex: 0

DRUGS (4)
  1. EVEROLIMUS [Suspect]
     Indication: HEART TRANSPLANT
     Dosage: UNK
     Dates: start: 20070413
  2. SANDIMMUN [Suspect]
     Indication: HEART TRANSPLANT
     Dosage: UNK
     Dates: start: 200506
  3. MYFENAX [Concomitant]
     Indication: HEART TRANSPLANT
     Dosage: UNK
  4. PREDNISOLON [Concomitant]
     Indication: HEART TRANSPLANT
     Dosage: UNK

REACTIONS (1)
  - Coronary artery stenosis [Unknown]
